FAERS Safety Report 7529090-4 (Version None)
Quarter: 2011Q2

REPORT INFORMATION
  Report Type: 
  Country: None (occurrence: None)
  Receive Date: 20110607
  Receipt Date: 20110526
  Transmission Date: 20111010
  Serious: Yes (Other)
  Sender: FDA-Public Use
  Company Number: JP-JNJFOC-20110600236

PATIENT
  Age: 6 Year
  Sex: Female

DRUGS (1)
  1. RISPERDAL [Suspect]
     Indication: AUTISM SPECTRUM DISORDER
     Route: 048

REACTIONS (7)
  - AGITATION [None]
  - DYSPHAGIA [None]
  - AGGRESSION [None]
  - MIDDLE INSOMNIA [None]
  - HYPERKINESIA [None]
  - MEMORY IMPAIRMENT [None]
  - DYSURIA [None]
